FAERS Safety Report 14692458 (Version 1)
Quarter: 2018Q1

REPORT INFORMATION
  Report Type: Spontaneous
  Country: CH (occurrence: CH)
  Receive Date: 20180329
  Receipt Date: 20180329
  Transmission Date: 20180509
  Serious: Yes (Hospitalization, Other)
  Sender: FDA-Public Use
  Company Number: CH-PURDUE-GBR-2018-0054343

PATIENT
  Age: 39 Year
  Sex: Male

DRUGS (7)
  1. SEVRE-LONG [Suspect]
     Active Substance: MORPHINE SULFATE
     Indication: SUBSTANCE DEPENDENCE
     Dosage: 200 MG, 6X/DAY
     Route: 048
     Dates: start: 201803
  2. ASPIRIN CARDIO [Concomitant]
     Active Substance: ASPIRIN
     Dosage: 100 MG, DAILY
     Route: 048
  3. LISITRIL [Concomitant]
     Active Substance: LISINOPRIL
     Dosage: 10 MG, DAILY
     Route: 048
  4. SEVRE-LONG [Suspect]
     Active Substance: MORPHINE SULFATE
     Indication: DRUG ABUSE
  5. BELOC ZOK [Concomitant]
     Active Substance: METOPROLOL SUCCINATE
     Dosage: 100 MG, DAILY
     Route: 048
  6. CRESTOR [Concomitant]
     Active Substance: ROSUVASTATIN CALCIUM
     Dosage: 20 MG, DAILY
     Route: 048
  7. OMEPRAZOL                          /00661201/ [Concomitant]
     Active Substance: OMEPRAZOLE
     Dosage: 40 MG, DAILY
     Route: 048

REACTIONS (4)
  - Influenza [Recovering/Resolving]
  - Vestibular disorder [Recovering/Resolving]
  - Drug abuse [Recovering/Resolving]
  - Vertigo [Recovering/Resolving]

NARRATIVE: CASE EVENT DATE: 201803
